FAERS Safety Report 25905405 (Version 2)
Quarter: 2025Q4

REPORT INFORMATION
  Report Type: Spontaneous
  Country: US (occurrence: US)
  Receive Date: 20251010
  Receipt Date: 20251203
  Transmission Date: 20260118
  Serious: No
  Sender: SANOFI AVENTIS
  Company Number: US-SA-2025SA301072

PATIENT
  Age: 11 Year
  Sex: Male

DRUGS (2)
  1. DUPIXENT [Suspect]
     Active Substance: DUPILUMAB
     Indication: Eczema
     Dosage: 300 MG, 1X
     Route: 058
     Dates: start: 202509
  2. DUPIXENT [Suspect]
     Active Substance: DUPILUMAB
     Dosage: 200 MG, QOW
     Route: 058
     Dates: start: 202510

REACTIONS (4)
  - Memory impairment [Unknown]
  - Product dose omission in error [Unknown]
  - Incorrect dose administered [Unknown]
  - Wrong patient received product [Unknown]

NARRATIVE: CASE EVENT DATE: 20250901
